FAERS Safety Report 8464652-1 (Version None)
Quarter: 2012Q2

REPORT INFORMATION
  Report Type: 
  Country: None (occurrence: None)
  Receive Date: 20120626
  Receipt Date: 20120622
  Transmission Date: 20120825
  Serious: No
  Sender: FDA-Public Use
  Company Number: US-TEVA-344890USA

PATIENT
  Sex: Male

DRUGS (1)
  1. NUVIGIL [Suspect]
     Indication: HYPERSOMNIA
     Route: 048

REACTIONS (2)
  - ANXIETY [None]
  - POOR QUALITY SLEEP [None]
